FAERS Safety Report 9118374 (Version 1)
Quarter: 2013Q1

REPORT INFORMATION
  Report Type: Spontaneous
  Country: DE (occurrence: None)
  Receive Date: 20130128
  Receipt Date: 20130128
  Transmission Date: 20140127
  Serious: Yes (Other)
  Sender: FDA-Public Use
  Company Number: GER/GER/13/0027546

PATIENT
  Age: 21 Year
  Sex: Female

DRUGS (1)
  1. IBUBETA 400 AKUT (IBUPROFEN) [Suspect]
     Indication: PRODUCT USED FOR UNKNOWN INDICATION
     Dosage: 8000  MG,  1 IN 1  TOTAL,  ORAL?01/20/2013  -  01/20/2013
     Route: 048
     Dates: start: 20130120, end: 20130120

REACTIONS (3)
  - Intentional overdose [None]
  - Loss of consciousness [None]
  - Tachycardia [None]
